FAERS Safety Report 11731852 (Version 1)
Quarter: 2015Q4

REPORT INFORMATION
  Report Type: Spontaneous
  Country: GB (occurrence: GB)
  Receive Date: 20151113
  Receipt Date: 20151113
  Transmission Date: 20160304
  Serious: Yes (Hospitalization)
  Sender: FDA-Public Use
  Company Number: GB-TEVA-606907ACC

PATIENT
  Age: 67 Year

DRUGS (7)
  1. FELODIPINE. [Concomitant]
     Active Substance: FELODIPINE
     Dosage: 2.5 MILLIGRAM DAILY;
  2. PIOGLITAZONE. [Concomitant]
     Active Substance: PIOGLITAZONE
     Dosage: 15 MILLIGRAM DAILY;
  3. CLOPIDOGREL [Concomitant]
     Active Substance: CLOPIDOGREL BISULFATE
     Dosage: 75 MILLIGRAM DAILY;
  4. BISOPROLOL [Suspect]
     Active Substance: BISOPROLOL
     Indication: ATRIAL FIBRILLATION
     Dosage: 3.75 MILLIGRAM DAILY;
     Dates: start: 20150908
  5. RAMIPRIL. [Concomitant]
     Active Substance: RAMIPRIL
     Dosage: 10 MILLIGRAM DAILY;
  6. METFORMIN [Concomitant]
     Active Substance: METFORMIN HYDROCHLORIDE
     Dosage: 1500 MILLIGRAM DAILY;
  7. ATORVASTATIN [Concomitant]
     Active Substance: ATORVASTATIN
     Dosage: 20 MILLIGRAM DAILY; AT NIGHT

REACTIONS (3)
  - Bradycardia [Recovered/Resolved]
  - Dyspnoea [Unknown]
  - Confusional state [Unknown]

NARRATIVE: CASE EVENT DATE: 20150915
